FAERS Safety Report 11058659 (Version 1)
Quarter: 2015Q2

REPORT INFORMATION
  Report Type: Spontaneous
  Country: US (occurrence: None)
  Receive Date: 20150422
  Receipt Date: 20150422
  Transmission Date: 20150821
  Serious: No
  Sender: FDA-Public Use
  Company Number: None

PATIENT
  Age: 73 Year
  Sex: Female
  Weight: 74.84 kg

DRUGS (8)
  1. RISPERDONE [Concomitant]
     Active Substance: RISPERIDONE
  2. MELATONIN [Concomitant]
     Active Substance: MELATONIN
  3. LITHIUM CARBONATE. [Concomitant]
     Active Substance: LITHIUM CARBONATE
  4. MIRTAZAPINE. [Concomitant]
     Active Substance: MIRTAZAPINE
  5. OMEPRAZOLE 20 MG [Suspect]
     Active Substance: OMEPRAZOLE
     Indication: DYSPEPSIA
     Route: 048
     Dates: start: 20150409, end: 20150410
  6. TYLENOL [Concomitant]
     Active Substance: ACETAMINOPHEN
  7. SEROQUEL [Concomitant]
     Active Substance: QUETIAPINE FUMARATE
  8. PEPTO-BISMOL [Concomitant]
     Active Substance: BISMUTH SUBSALICYLATE\CALCIUM CARBONATE

REACTIONS (5)
  - Dry mouth [None]
  - Nervousness [None]
  - Anxiety [None]
  - Feeling jittery [None]
  - Chest pain [None]

NARRATIVE: CASE EVENT DATE: 20150409
